FAERS Safety Report 23277082 (Version 1)
Quarter: 2023Q4

REPORT INFORMATION
  Report Type: Spontaneous
  Country: US (occurrence: US)
  Receive Date: 20231208
  Receipt Date: 20231208
  Transmission Date: 20240109
  Serious: No
  Sender: FDA-Public Use
  Company Number: US-drreddys-LIT/USA/23/0188068

PATIENT

DRUGS (8)
  1. NORTRIPTYLINE HYDROCHLORIDE [Suspect]
     Active Substance: NORTRIPTYLINE HYDROCHLORIDE
     Indication: Neuralgia
     Dosage: FIRST AND SECOND-LINE MEDICATION
  2. GABAPENTIN [Suspect]
     Active Substance: GABAPENTIN
     Indication: Neuralgia
     Dosage: FIRST AND SECOND-LINE MEDICATION
  3. CARBAMAZEPINE [Suspect]
     Active Substance: CARBAMAZEPINE
     Indication: Neuralgia
     Dosage: FIRST AND SECOND-LINE MEDICATION
  4. OXCARBAZEPINE [Suspect]
     Active Substance: OXCARBAZEPINE
     Indication: Neuralgia
     Dosage: FIRST AND SECOND-LINE MEDICATION
  5. PREDNISONE [Suspect]
     Active Substance: PREDNISONE
     Indication: Neuralgia
     Dosage: FIRST AND SECOND-LINE MEDICATION
  6. KETAMINE [Suspect]
     Active Substance: KETAMINE
     Indication: Neuralgia
     Dosage: 5 TO 10 MG THIRD LINE MEDICATION
     Route: 048
  7. OXYCODONE [Concomitant]
     Active Substance: OXYCODONE
     Indication: Neuralgia
  8. OXYCODONE [Concomitant]
     Active Substance: OXYCODONE
     Indication: Sleep disorder

REACTIONS (5)
  - Mood altered [Recovering/Resolving]
  - Condition aggravated [Recovering/Resolving]
  - Cortisol increased [Recovered/Resolved]
  - Disorientation [Unknown]
  - Somnolence [Unknown]
